FAERS Safety Report 6032659-X (Version None)
Quarter: 2008Q4

REPORT INFORMATION
  Report Type: 
  Country: None (occurrence: None)
  Receive Date: 20081224
  Receipt Date: 20081022
  Transmission Date: 20090506
  Serious: No
  Sender: FDA-Public Use
  Company Number: 2008PV036968

PATIENT
  Age: 51 Year
  Sex: Female

DRUGS (3)
  1. SYMLIN [Suspect]
     Indication: TYPE 2 DIABETES MELLITUS
     Dosage: 30 MCG;TID;SC; 15 MCG;TID;SC
     Route: 058
     Dates: start: 20081011, end: 20081017
  2. SYMLIN [Suspect]
     Indication: TYPE 2 DIABETES MELLITUS
     Dosage: 30 MCG;TID;SC; 15 MCG;TID;SC
     Route: 058
     Dates: start: 20081018
  3. HUMALOG [Concomitant]

REACTIONS (3)
  - BLOOD GLUCOSE FLUCTUATION [None]
  - DRUG PRESCRIBING ERROR [None]
  - MIGRAINE [None]
